FAERS Safety Report 19670818 (Version 1)
Quarter: 2021Q3

REPORT INFORMATION
  Report Type: Spontaneous
  Country: US (occurrence: US)
  Receive Date: 20210806
  Receipt Date: 20210806
  Transmission Date: 20211014
  Serious: No
  Sender: FDA-Public Use
  Company Number: US-PFIZER INC-2021734377

PATIENT
  Sex: Male

DRUGS (1)
  1. PROTONIX [Suspect]
     Active Substance: PANTOPRAZOLE SODIUM
     Indication: EOSINOPHILIC OESOPHAGITIS
     Dosage: UNK

REACTIONS (2)
  - Lymph node pain [Not Recovered/Not Resolved]
  - Off label use [Unknown]
